FAERS Safety Report 6434093-7 (Version None)
Quarter: 2009Q4

REPORT INFORMATION
  Report Type: 
  Country: None (occurrence: None)
  Receive Date: 20091110
  Receipt Date: 20090217
  Transmission Date: 20100525
  Serious: No
  Sender: FDA-Public Use
  Company Number: US-ASTRAZENECA-2009SE04817

PATIENT
  Sex: Male

DRUGS (6)
  1. PRILOSEC OTC [Suspect]
     Dosage: 1 TABLET, 1 /DAY
     Route: 048
     Dates: start: 20090214
  2. DIGOXIN [Interacting]
     Dosage: UNKNOWN
  3. CARDIZEM CD [Concomitant]
     Dosage: UNKNOWN
  4. LESCOL                             /01224501/ [Concomitant]
     Dosage: UNKNOWN
  5. DIOVAN HCT [Concomitant]
     Dosage: UNKNOWN
  6. METFORMIN HCL [Concomitant]
     Dosage: UNKNOWN

REACTIONS (2)
  - BLOOD GLUCOSE INCREASED [None]
  - LABELLED DRUG-DRUG INTERACTION MEDICATION ERROR [None]
